FAERS Safety Report 10367257 (Version 1)
Quarter: 2014Q3

REPORT INFORMATION
  Report Type: Spontaneous
  Country: FI (occurrence: None)
  Receive Date: 20140805
  Receipt Date: 20140805
  Transmission Date: 20150326
  Serious: No
  Sender: FDA-Public Use
  Company Number: None

PATIENT
  Sex: Male

DRUGS (1)
  1. ROACCUTANE [Suspect]
     Active Substance: ISOTRETINOIN

REACTIONS (10)
  - Dry skin [None]
  - Contusion [None]
  - Melanocytic naevus [None]
  - Skin fragility [None]
  - Depression [None]
  - Alopecia [None]
  - Hair growth abnormal [None]
  - Increased tendency to bruise [None]
  - Impaired healing [None]
  - Dark circles under eyes [None]
